FAERS Safety Report 7285956-4 (Version None)
Quarter: 2011Q1

REPORT INFORMATION
  Report Type: 
  Country: None (occurrence: None)
  Receive Date: 20110210
  Receipt Date: 20101020
  Transmission Date: 20110831
  Serious: No
  Sender: FDA-Public Use
  Company Number: US-BAYER-201023236BCC

PATIENT
  Sex: Female
  Weight: 72.273 kg

DRUGS (2)
  1. ASPIRIN [Concomitant]
  2. ALEVE [Suspect]
     Indication: ARTHRITIS
     Dosage: 2 DF, QD
     Route: 048

REACTIONS (1)
  - ARTHRALGIA [None]
